FAERS Safety Report 17729359 (Version 10)
Quarter: 2024Q4

REPORT INFORMATION
  Report Type: Report from Study
  Country: JP (occurrence: JP)
  Receive Date: 20200430
  Receipt Date: 20241025
  Transmission Date: 20250115
  Serious: Yes (Other)
  Sender: ABBVIE
  Company Number: JP-TAKEDA-2020TJP008327

PATIENT
  Age: 74 Year
  Sex: Male
  Weight: 41.6 kg

DRUGS (24)
  1. LEUPROLIDE ACETATE [Suspect]
     Active Substance: LEUPROLIDE ACETATE
     Indication: Bulbospinal muscular atrophy congenital
     Dosage: 11.25 MILLIGRAM, Q3MONTHS
     Route: 058
     Dates: start: 20171031
  2. PREDONINE [Suspect]
     Active Substance: PREDNISOLONE
     Indication: Pemphigoid
     Dosage: 8 MILLIGRAM
     Route: 065
     Dates: start: 20190604, end: 20190814
  3. PREDONINE [Suspect]
     Active Substance: PREDNISOLONE
     Indication: Pemphigoid
     Dosage: 5 MILLIGRAM
     Route: 065
     Dates: start: 20200515, end: 20210616
  4. PREDONINE [Suspect]
     Active Substance: PREDNISOLONE
     Indication: Pemphigoid
     Dosage: 5 MILLIGRAM
     Route: 065
     Dates: start: 20190905, end: 20190918
  5. PREDONINE [Suspect]
     Active Substance: PREDNISOLONE
     Indication: Pemphigoid
     Dosage: 3 MILLIGRAM
     Route: 065
     Dates: start: 20210819
  6. PREDONINE [Suspect]
     Active Substance: PREDNISOLONE
     Indication: Pemphigoid
     Dosage: 7 MILLIGRAM
     Route: 065
     Dates: start: 20190815, end: 20190822
  7. PREDONINE [Suspect]
     Active Substance: PREDNISOLONE
     Indication: Pemphigoid
     Dosage: 6 MILLIGRAM
     Route: 065
     Dates: start: 20190823, end: 20190904
  8. PREDONINE [Suspect]
     Active Substance: PREDNISOLONE
     Indication: Pemphigoid
     Dosage: 2 MILLIGRAM
     Route: 065
     Dates: start: 20191031, end: 20191126
  9. PREDONINE [Suspect]
     Active Substance: PREDNISOLONE
     Indication: Pemphigoid
     Dosage: 3 MILLIGRAM
     Route: 065
     Dates: start: 20191003, end: 20191030
  10. PREDONINE [Suspect]
     Active Substance: PREDNISOLONE
     Indication: Pemphigoid
     Dosage: 1 MILLIGRAM
     Route: 065
     Dates: start: 20191127, end: 20200108
  11. PREDONINE [Suspect]
     Active Substance: PREDNISOLONE
     Indication: Pemphigoid
     Dosage: 4 MILLIGRAM
     Route: 065
     Dates: start: 20190919, end: 20191002
  12. PREDONINE [Suspect]
     Active Substance: PREDNISOLONE
     Indication: Pemphigoid
     Dosage: 4 MILLIGRAM
     Route: 065
     Dates: start: 20210617, end: 20210818
  13. VONOPRAZAN FUMARATE [Concomitant]
     Active Substance: VONOPRAZAN FUMARATE
     Indication: Gastrointestinal haemorrhage
     Dosage: 10 MILLIGRAM
     Route: 065
  14. CARBOCYSTEINE [Concomitant]
     Active Substance: CARBOCYSTEINE
     Indication: Bulbospinal muscular atrophy congenital
     Dosage: 1500 MILLIGRAM
     Route: 065
  15. EDOXABAN TOSYLATE [Concomitant]
     Active Substance: EDOXABAN TOSYLATE
     Indication: Sinus node dysfunction
     Dosage: 30 MILLIGRAM
     Route: 065
  16. OLMESARTAN MEDOXOMIL [Concomitant]
     Active Substance: OLMESARTAN MEDOXOMIL
     Indication: Product used for unknown indication
     Dosage: 20 MILLIGRAM
     Route: 065
     Dates: end: 20190802
  17. BISOPROLOL [Concomitant]
     Active Substance: BISOPROLOL\BISOPROLOL FUMARATE
     Indication: Product used for unknown indication
     Dosage: 2.5 MILLIGRAM
     Route: 050
  18. FLUTICASONE FUROATE [Concomitant]
     Active Substance: FLUTICASONE FUROATE
     Indication: Rhinitis allergic
     Dosage: 27.5 MILLIGRAM
     Route: 065
     Dates: end: 20190823
  19. BELSOMRA [Concomitant]
     Active Substance: SUVOREXANT
     Indication: Insomnia
     Dosage: 15 MILLIGRAM
     Route: 065
     Dates: start: 20190612, end: 20210120
  20. BILASTINE [Concomitant]
     Active Substance: BILASTINE
     Indication: Product used for unknown indication
     Dosage: 20 MILLIGRAM
     Route: 065
     Dates: start: 20190531, end: 20190615
  21. SULFAMETHOXAZOLE\TRIMETHOPRIM [Concomitant]
     Active Substance: SULFAMETHOXAZOLE\TRIMETHOPRIM
     Indication: Product used for unknown indication
     Dosage: 1 DOSAGE FORM
     Route: 065
     Dates: start: 20190615, end: 20190815
  22. BONALON [Concomitant]
     Active Substance: ALENDRONATE SODIUM
     Indication: Osteoporosis
     Dosage: 35 MILLIGRAM
     Route: 065
     Dates: start: 20190625
  23. MAGNESIUM OXIDE [Concomitant]
     Active Substance: MAGNESIUM OXIDE
     Indication: Constipation
     Dosage: UNK MILLIGRAM
     Route: 065
     Dates: start: 201607
  24. MAGNESIUM OXIDE [Concomitant]
     Active Substance: MAGNESIUM OXIDE
     Indication: Constipation
     Dosage: 1000 MILLIGRAM
     Route: 065
     Dates: start: 20190302

REACTIONS (3)
  - Steroid diabetes [Recovering/Resolving]
  - Pemphigoid [Recovering/Resolving]
  - Dyslipidaemia [Recovering/Resolving]

NARRATIVE: CASE EVENT DATE: 20190101
